FAERS Safety Report 4304259-0 (Version None)
Quarter: 2004Q1

REPORT INFORMATION
  Report Type: 
  Country: None (occurrence: None)
  Receive Date: 20040225
  Receipt Date: 19950309
  Transmission Date: 20041129
  Serious: Yes (Life-Threatening, Hospitalization)
  Sender: FDA-Public Use
  Company Number: WAES 94097725

PATIENT
  Age: 55 Year
  Sex: Female

DRUGS (10)
  1. ATENOLOL [Concomitant]
  2. DESIPRAMINE [Concomitant]
     Dates: end: 19940925
  3. DILTIAZEM HYDROCHLORIDE [Concomitant]
  4. GEMFIBROZIL [Suspect]
     Indication: HYPERCHOLESTEROLAEMIA
     Route: 048
     Dates: start: 19940624, end: 19940925
  5. ISOSORBIDE-5-MONONITRATE [Concomitant]
  6. MEDROXYPROGESTERONE ACETATE [Concomitant]
  7. OMEPRAZOLE [Concomitant]
  8. PIPERAZINE ADIPATE [Concomitant]
  9. ZOCOR [Suspect]
     Indication: HYPERCHOLESTEROLAEMIA
     Route: 048
     Dates: start: 19930514, end: 19940624
  10. ZOCOR [Suspect]
     Route: 048
     Dates: start: 19940826, end: 19940925

REACTIONS (7)
  - ANGINA UNSTABLE [None]
  - BLOOD CREATINE PHOSPHOKINASE INCREASED [None]
  - DRUG INTERACTION [None]
  - HAEMODIALYSIS [None]
  - PULMONARY OEDEMA [None]
  - RENAL FAILURE ACUTE [None]
  - RHABDOMYOLYSIS [None]
